FAERS Safety Report 19242789 (Version 1)
Quarter: 2021Q2

REPORT INFORMATION
  Report Type: Spontaneous
  Country: IE (occurrence: IE)
  Receive Date: 20210511
  Receipt Date: 20210511
  Transmission Date: 20210717
  Serious: Yes (Other)
  Sender: FDA-Public Use
  Company Number: IE-RISING PHARMA HOLDINGS, INC.-2021RIS000038

PATIENT
  Age: 13 Year
  Sex: Female

DRUGS (1)
  1. RISPERIDONE. [Suspect]
     Active Substance: RISPERIDONE
     Indication: AUTISM SPECTRUM DISORDER
     Dosage: 0.25 MILLIGRAM, QD
     Route: 065

REACTIONS (2)
  - Catatonia [Recovered/Resolved]
  - Drug withdrawal syndrome [Recovered/Resolved]
